FAERS Safety Report 8154106-4 (Version None)
Quarter: 2012Q1

REPORT INFORMATION
  Report Type: 
  Country: None (occurrence: None)
  Receive Date: 20120221
  Receipt Date: 20120216
  Transmission Date: 20120608
  Serious: Yes (Disabling)
  Sender: FDA-Public Use
  Company Number: US-MERCK-1109USA02461

PATIENT
  Age: 47 Year
  Sex: Male

DRUGS (3)
  1. PROSCAR [Suspect]
     Indication: ALOPECIA
     Route: 048
     Dates: start: 19980101, end: 20080101
  2. PROPECIA [Suspect]
     Route: 065
     Dates: start: 19980101, end: 20080101
  3. PROPECIA [Suspect]
     Indication: ANDROGENETIC ALOPECIA
     Route: 048
     Dates: start: 19980101, end: 20090101

REACTIONS (11)
  - ANXIETY [None]
  - BLOOD CHOLESTEROL INCREASED [None]
  - EMOTIONAL DISTRESS [None]
  - WEIGHT DECREASED [None]
  - INSOMNIA [None]
  - SEXUAL DYSFUNCTION [None]
  - DEPRESSION [None]
  - INTENTIONAL DRUG MISUSE [None]
  - TESTICULAR PAIN [None]
  - MUSCULAR WEAKNESS [None]
  - ANGER [None]
